FAERS Safety Report 8235727 (Version 4)
Quarter: 2013Q3

REPORT INFORMATION
  Report Type: Report from Study
  Country: US (occurrence: US)
  Receive Date: 20111108
  Receipt Date: 20130806
  Transmission Date: 20140515
  Serious: Yes (Hospitalization)
  Sender: FDA-Public Use
  Company Number: US-SANOFI-AVENTIS-2011SA071396

PATIENT
  Age: 68 Year
  Sex: Female

DRUGS (14)
  1. CLOPIDOGREL BISULFATE [Suspect]
     Dates: start: 20110324, end: 20111007
  2. CLOPIDOGREL BISULFATE [Suspect]
     Dates: start: 201110
  3. ASPIRIN [Suspect]
     Dates: start: 20110324
  4. PLACEBO [Suspect]
     Indication: TYPE 2 DIABETES MELLITUS
     Route: 048
     Dates: start: 20110324, end: 20111007
  5. PLACEBO [Suspect]
     Indication: TYPE 2 DIABETES MELLITUS
     Route: 048
     Dates: start: 20111020
  6. METFORMIN [Concomitant]
     Indication: DIABETES MELLITUS
  7. AMARYL [Concomitant]
     Indication: DIABETES MELLITUS
     Route: 065
     Dates: end: 20110718
  8. AMARYL [Concomitant]
     Indication: DIABETES MELLITUS
     Route: 065
     Dates: start: 20110719
  9. CHOLESTEROL- AND TRIGLYCERIDE REDUCERS [Concomitant]
     Dates: start: 20110324
  10. ALL OTHER THERAPEUTIC PRODUCTS [Concomitant]
     Dates: start: 20110324
  11. ANTITHROMBOTIC AGENTS [Concomitant]
     Route: 048
     Dates: start: 20110324
  12. ACE INHIBITOR NOS [Concomitant]
     Dates: start: 20110324
  13. BETA BLOCKING AGENTS [Concomitant]
     Dates: start: 20110324
  14. NSAID^S [Concomitant]

REACTIONS (6)
  - Gastritis erosive [Recovered/Resolved]
  - Dyspnoea [Recovering/Resolving]
  - Microcytic anaemia [Recovering/Resolving]
  - Gastrointestinal haemorrhage [Recovering/Resolving]
  - Hernia [Recovering/Resolving]
  - Candida infection [Unknown]
